FAERS Safety Report 17709785 (Version 3)
Quarter: 2020Q4

REPORT INFORMATION
  Report Type: Report from Study
  Country: US (occurrence: US)
  Receive Date: 20200427
  Receipt Date: 20201223
  Transmission Date: 20210113
  Serious: Yes (Other)
  Sender: FDA-Public Use
  Company Number: US-EMD SERONO-9158448

PATIENT
  Age: 58 Year
  Sex: Female

DRUGS (2)
  1. MAVENCLAD [Suspect]
     Active Substance: CLADRIBINE
     Indication: MULTIPLE SCLEROSIS
     Dosage: YEAR ONE ROUND ONE THERAPY.
     Route: 048
     Dates: start: 20200311
  2. MAVENCLAD [Suspect]
     Active Substance: CLADRIBINE
     Dosage: YEAR ONE ROUND TWO THERAPY
     Route: 048
     Dates: start: 20200407, end: 20200411

REACTIONS (6)
  - Dawn phenomenon [Unknown]
  - JC polyomavirus test positive [Unknown]
  - Muscle spasms [Unknown]
  - Diabetes mellitus [Not Recovered/Not Resolved]
  - Heart rate increased [Unknown]
  - Intracardiac mass [Unknown]

NARRATIVE: CASE EVENT DATE: 2020
